FAERS Safety Report 5373916-X (Version None)
Quarter: 2007Q2

REPORT INFORMATION
  Report Type: 
  Country: None (occurrence: None)
  Receive Date: 20070628
  Receipt Date: 20070620
  Transmission Date: 20071010
  Serious: Yes (Other)
  Sender: FDA-Public Use
  Company Number: BR-BOEHRINGER INGELHEIM PHARMACEUTICALS, INC.-2007-BP-11919BR

PATIENT
  Age: 58 Year
  Sex: Female

DRUGS (3)
  1. MICARDIS [Suspect]
     Indication: HYPERTENSION
     Route: 048
     Dates: start: 20061201, end: 20070601
  2. PRECSIX [Concomitant]
     Indication: BONE PAIN
  3. BRIMAX [Concomitant]
     Indication: HYPERTENSION

REACTIONS (1)
  - THERAPEUTIC RESPONSE DECREASED [None]
